FAERS Safety Report 7729805-6 (Version None)
Quarter: 2011Q3

REPORT INFORMATION
  Report Type: 
  Country: None (occurrence: None)
  Receive Date: 20110906
  Receipt Date: 20110830
  Transmission Date: 20111222
  Serious: Yes (Hospitalization)
  Sender: FDA-Public Use
  Company Number: FR-ROCHE-696545

PATIENT
  Sex: Male

DRUGS (6)
  1. GENTAMYCIN SULFATE [Concomitant]
     Dosage: DRUG REPORTED AS GENTAMYCINE
     Dates: start: 20091127, end: 20091130
  2. ROCEPHIN [Suspect]
     Route: 042
     Dates: start: 20091127, end: 20091218
  3. AMIKACIN [Concomitant]
     Route: 042
     Dates: start: 20091203, end: 20091208
  4. OFLOXACIN [Suspect]
     Dosage: STRENGTH: 200 MG/ 40 ML; FORM: INJECTABLE SOLUTION FOR INFUSION
     Route: 042
     Dates: start: 20091130, end: 20091226
  5. OFLOXACIN [Suspect]
     Route: 042
     Dates: start: 20100901
  6. VANCOMYCIN [Concomitant]
     Route: 042
     Dates: start: 20091203, end: 20091222

REACTIONS (2)
  - DRUG RASH WITH EOSINOPHILIA AND SYSTEMIC SYMPTOMS [None]
  - SKIN TEST POSITIVE [None]
